FAERS Safety Report 19086312 (Version 1)
Quarter: 2021Q2

REPORT INFORMATION
  Report Type: Spontaneous
  Country: DK (occurrence: DK)
  Receive Date: 20210402
  Receipt Date: 20210402
  Transmission Date: 20210717
  Serious: Yes (Other)
  Sender: FDA-Public Use
  Company Number: DK-LUPIN PHARMACEUTICALS INC.-2021-04019

PATIENT
  Age: 78 Year
  Sex: Male

DRUGS (1)
  1. SULFAMETHOXAZOLE AND TRIMETHOPRIM [Suspect]
     Active Substance: SULFAMETHOXAZOLE\TRIMETHOPRIM
     Indication: PULMONARY NOCARDIOSIS
     Dosage: UNK
     Route: 065

REACTIONS (3)
  - Myelosuppression [Recovered/Resolved]
  - Acute kidney injury [Unknown]
  - Bradycardia [Unknown]
